FAERS Safety Report 5384374-3 (Version None)
Quarter: 2007Q3

REPORT INFORMATION
  Report Type: 
  Country: None (occurrence: None)
  Receive Date: 20070711
  Receipt Date: 20070426
  Transmission Date: 20080115
  Serious: No
  Sender: FDA-Public Use
  Company Number: US-AMGEN-KDL219334

PATIENT
  Sex: Female
  Weight: 84 kg

DRUGS (6)
  1. KINERET [Suspect]
     Indication: RHEUMATOID ARTHRITIS
     Route: 058
     Dates: start: 20070408
  2. VICODIN [Concomitant]
     Dates: start: 20070116
  3. PREDNISONE [Concomitant]
     Dates: start: 20060126
  4. DOLOBID [Concomitant]
     Dates: start: 20070116
  5. PREMARIN [Concomitant]
  6. LEVOXYL [Concomitant]

REACTIONS (3)
  - DIZZINESS [None]
  - INJECTION SITE PAIN [None]
  - NAUSEA [None]
